FAERS Safety Report 5052590-6 (Version None)
Quarter: 2006Q3

REPORT INFORMATION
  Report Type: 
  Country: None (occurrence: None)
  Receive Date: 20060717
  Receipt Date: 20060612
  Transmission Date: 20061208
  Serious: Yes (Disabling)
  Sender: FDA-Public Use
  Company Number: JP-JPN-A200602072

PATIENT
  Age: 23 Year
  Sex: Female
  Weight: 49 kg

DRUGS (5)
  1. PAXIL [Suspect]
     Indication: SOCIAL PHOBIA
     Route: 048
     Dates: start: 20060427, end: 20060630
  2. ALPRAZOLAM [Suspect]
     Indication: ANXIETY
     Route: 048
     Dates: start: 20060530, end: 20060630
  3. RISPERDAL [Suspect]
     Indication: SCHIZOPHRENIA
     Route: 048
     Dates: start: 20060609
  4. GASMOTIN [Concomitant]
     Dosage: 10MG PER DAY
     Route: 048
     Dates: start: 20060428, end: 20060609
  5. LOXONIN [Concomitant]
     Indication: HEADACHE
     Route: 048
     Dates: start: 20060616

REACTIONS (5)
  - ANOREXIA AND BULIMIA SYNDROME [None]
  - CONDITION AGGRAVATED [None]
  - EATING DISORDER [None]
  - NIGHTMARE [None]
  - OBSESSIVE-COMPULSIVE DISORDER [None]
